FAERS Safety Report 7338854-1 (Version None)
Quarter: 2011Q1

REPORT INFORMATION
  Report Type: 
  Country: None (occurrence: None)
  Receive Date: 20110304
  Receipt Date: 20110304
  Transmission Date: 20110831
  Serious: No
  Sender: FDA-Public Use
  Company Number: None

PATIENT
  Age: 70 Year
  Sex: Male
  Weight: 97.5234 kg

DRUGS (1)
  1. METOPROLOL SUCCINATE [Suspect]
     Indication: BLOOD PRESSURE
     Dosage: ONE TABLET DAILY PO
     Route: 048
     Dates: start: 20110210, end: 20110220

REACTIONS (7)
  - VISION BLURRED [None]
  - WITHDRAWAL SYNDROME [None]
  - TINNITUS [None]
  - HEADACHE [None]
  - BLOOD PRESSURE INCREASED [None]
  - PRODUCT SUBSTITUTION ISSUE [None]
  - PRODUCT QUALITY ISSUE [None]
